FAERS Safety Report 7497885-1 (Version None)
Quarter: 2011Q2

REPORT INFORMATION
  Report Type: 
  Country: None (occurrence: None)
  Receive Date: 20110524
  Receipt Date: 20110423
  Transmission Date: 20111010
  Serious: No
  Sender: FDA-Public Use
  Company Number: US-BAYER-2011-036316

PATIENT
  Age: 21 Year
  Sex: Male

DRUGS (3)
  1. ALEVE (CAPLET) [Suspect]
     Indication: BACK PAIN
     Dosage: 440 MG, TID
     Route: 048
  2. ALEVE (CAPLET) [Suspect]
     Indication: PAIN IN EXTREMITY
  3. VITAMINS [Concomitant]

REACTIONS (1)
  - NO ADVERSE EVENT [None]
